FAERS Safety Report 6028939-4 (Version None)
Quarter: 2009Q1

REPORT INFORMATION
  Report Type: 
  Country: None (occurrence: None)
  Receive Date: 20090106
  Receipt Date: 20081231
  Transmission Date: 20090719
  Serious: Yes (Other)
  Sender: FDA-Public Use
  Company Number: US-ASTRAZENECA-2008UW28989

PATIENT
  Age: 68 Year
  Sex: Female
  Weight: 127 kg

DRUGS (3)
  1. CRESTOR [Suspect]
     Indication: BLOOD CHOLESTEROL INCREASED
     Route: 048
  2. NORVASC [Concomitant]
  3. TENORMIN [Concomitant]
     Route: 048

REACTIONS (1)
  - HYPERTENSION [None]
